FAERS Safety Report 9118090 (Version 1)
Quarter: 2013Q1

REPORT INFORMATION
  Report Type: Spontaneous
  Country: US (occurrence: US)
  Receive Date: 20130209
  Receipt Date: 20130209
  Transmission Date: 20140127
  Serious: Yes (Hospitalization)
  Sender: FDA-Public Use
  Company Number: US-B.I. PHARMACEUTICALS,INC./RIDGEFIELD-2013-BI-03294BP

PATIENT
  Age: 57 None
  Sex: Female
  Weight: 99 kg

DRUGS (22)
  1. MIRAPEX [Suspect]
     Indication: RESTLESS LEGS SYNDROME
     Dosage: 0.25 MG
     Route: 048
     Dates: start: 2004
  2. TAMIFLU [Concomitant]
  3. FLUTICASONE PROPIONATE [Concomitant]
     Indication: ASTHMA
     Route: 045
  4. METOPROLOL [Concomitant]
     Indication: HYPERTENSION
     Dosage: 200 MG
     Route: 048
  5. SINGULAIR [Concomitant]
     Indication: SEASONAL ALLERGY
     Route: 055
  6. SINGULAIR [Concomitant]
     Indication: HYPERSENSITIVITY
  7. TYLENOL #3 [Concomitant]
     Indication: PAIN
     Route: 048
  8. GLIPIZIDE [Concomitant]
     Indication: DIABETES MELLITUS
     Dosage: 5 MG
     Route: 048
  9. LORAZEPAM [Concomitant]
     Indication: ANXIETY
     Dosage: 0.5 MG
     Route: 048
  10. LISINOPRIL [Concomitant]
     Indication: HYPERTENSION
     Dosage: 10 MG
     Route: 048
  11. CRESTOR [Concomitant]
     Indication: BLOOD CHOLESTEROL INCREASED
     Dosage: 40 MG
     Route: 048
  12. DETROL LA [Concomitant]
     Indication: URINARY INCONTINENCE
     Dosage: 4 MG
     Route: 048
  13. PERCOCET [Concomitant]
     Indication: PAIN
     Route: 048
  14. ALBUTEROL [Concomitant]
     Indication: ASTHMA
     Dosage: 8 PUF
     Route: 055
  15. LIDODERM PATCH [Concomitant]
     Indication: PAIN
     Route: 061
  16. PREDNISONE [Concomitant]
  17. SYMBICORT [Concomitant]
     Dosage: 2 PUF
     Route: 055
  18. ALLOPURINOL [Concomitant]
     Indication: GOUT
     Dosage: 300 MG
     Route: 048
  19. NEXIUM [Concomitant]
     Dosage: 40 MG
     Route: 048
  20. TIZANIDINE [Concomitant]
     Indication: ARTHRALGIA
     Dosage: 12 MG
     Route: 048
  21. EFFEXOR [Concomitant]
     Indication: DEPRESSION
     Dosage: 150 MG
     Route: 048
  22. TOPAMAX [Concomitant]
     Dosage: 100 MG
     Route: 048

REACTIONS (5)
  - Transient ischaemic attack [Recovered/Resolved]
  - Speech disorder [Recovered/Resolved]
  - Hypotension [Recovered/Resolved]
  - Amnesia [Not Recovered/Not Resolved]
  - Influenza [Not Recovered/Not Resolved]
